FAERS Safety Report 5851645-3 (Version None)
Quarter: 2008Q3

REPORT INFORMATION
  Report Type: 
  Country: None (occurrence: None)
  Receive Date: 20080820
  Receipt Date: 20080812
  Transmission Date: 20090109
  Serious: Yes (Other)
  Sender: FDA-Public Use
  Company Number: US-ELI_LILLY_AND_COMPANY-US200806002808

PATIENT
  Sex: Female
  Weight: 113.83 kg

DRUGS (4)
  1. BYETTA [Suspect]
     Indication: TYPE 2 DIABETES MELLITUS
     Dosage: 5 UG, 2/D
     Route: 058
     Dates: start: 20070901, end: 20080101
  2. BYETTA [Suspect]
     Dosage: 10 UG, 2/D
     Route: 058
     Dates: start: 20080101
  3. GLUCOPHAGE [Concomitant]
  4. ACTOS [Concomitant]

REACTIONS (6)
  - EYE DISORDER [None]
  - MACULAR DEGENERATION [None]
  - MUSCULOSKELETAL STIFFNESS [None]
  - MYALGIA [None]
  - OCULAR HYPERTENSION [None]
  - VITREOUS DETACHMENT [None]
